FAERS Safety Report 16925497 (Version 9)
Quarter: 2022Q1

REPORT INFORMATION
  Report Type: Report from Study
  Country: US (occurrence: US)
  Receive Date: 20191016
  Receipt Date: 20220127
  Transmission Date: 20220423
  Serious: Yes (Other)
  Sender: FDA-Public Use
  Company Number: US-MALLINCKRODT-T201904293

PATIENT
  Sex: Male
  Weight: 118 kg

DRUGS (11)
  1. CORTICOTROPIN [Suspect]
     Active Substance: CORTICOTROPIN
     Indication: Neurotrophic keratopathy
     Dosage: 24 UNITS BIWEEKLY
     Route: 065
     Dates: start: 20190201, end: 201902
  2. CORTICOTROPIN [Suspect]
     Active Substance: CORTICOTROPIN
     Dosage: 80 UNITS/1ML, TWICE WEEKLY FOR 5 DAYS
     Route: 042
     Dates: start: 20190215, end: 2019
  3. CORTICOTROPIN [Suspect]
     Active Substance: CORTICOTROPIN
     Dosage: 32 UNITS/.4 ML,  2 TIMES PER WEEK, MONDAY/FRIDAY
     Route: 030
     Dates: start: 2019, end: 2019
  4. CORTICOTROPIN [Suspect]
     Active Substance: CORTICOTROPIN
     Dosage: 40 UNITS, UNK
     Route: 030
     Dates: start: 2019, end: 2019
  5. CORTICOTROPIN [Suspect]
     Active Substance: CORTICOTROPIN
     Dosage: 32 UNITS, 2 TIMES A WEEK, MONDAY / THURSDAY
     Route: 030
     Dates: start: 20190902, end: 2019
  6. CORTICOTROPIN [Suspect]
     Active Substance: CORTICOTROPIN
     Dosage: 24 UNITS, UNK
     Route: 030
     Dates: start: 2019, end: 2019
  7. CORTICOTROPIN [Suspect]
     Active Substance: CORTICOTROPIN
     Dosage: 40 UNITS / 0.5 ML TWICE A WEEK
     Route: 030
     Dates: start: 20190909
  8. CORTICOTROPIN [Suspect]
     Active Substance: CORTICOTROPIN
     Dosage: 28 UNITS, 2 TIMES PER WEEK (MON/THUR)
     Route: 030
  9. CORTICOTROPIN [Suspect]
     Active Substance: CORTICOTROPIN
     Dosage: 24 UNITS, 2 TIMES PER WEEK
     Route: 058
     Dates: start: 20200311, end: 2021
  10. CORTICOTROPIN [Suspect]
     Active Substance: CORTICOTROPIN
     Dosage: 24 UNITS EVERY OTHER DAY
     Route: 065
     Dates: start: 2021, end: 202112
  11. CORTICOTROPIN [Suspect]
     Active Substance: CORTICOTROPIN
     Dosage: 24 UNITS ON MONDAY, WEDNESDAY AND FRIDAY
     Route: 065
     Dates: start: 202112

REACTIONS (24)
  - Diabetes mellitus [Not Recovered/Not Resolved]
  - Hypertension [Not Recovered/Not Resolved]
  - Gastroenteritis viral [Not Recovered/Not Resolved]
  - Corneal transplant [Unknown]
  - Corneal disorder [Unknown]
  - Blindness unilateral [Recovered/Resolved]
  - Haemorrhage [Not Recovered/Not Resolved]
  - Glaucoma [Not Recovered/Not Resolved]
  - Illness [Not Recovered/Not Resolved]
  - Asthenia [Not Recovered/Not Resolved]
  - Feeling abnormal [Not Recovered/Not Resolved]
  - Liver disorder [Unknown]
  - Hepatitis A [Recovering/Resolving]
  - Hepatic enzyme increased [Unknown]
  - Glycosylated haemoglobin increased [Unknown]
  - Fatigue [Unknown]
  - Hypotension [Unknown]
  - Blood cholesterol abnormal [Unknown]
  - Increased tendency to bruise [Not Recovered/Not Resolved]
  - Injection site pain [Recovering/Resolving]
  - Irritability [Unknown]
  - Drug ineffective [Unknown]
  - Incorrect route of product administration [Unknown]
  - Product dose omission issue [Recovered/Resolved]

NARRATIVE: CASE EVENT DATE: 20190101
